FAERS Safety Report 4620178-4 (Version None)
Quarter: 2005Q1

REPORT INFORMATION
  Report Type: 
  Country: None (occurrence: None)
  Receive Date: 20050324
  Receipt Date: 20050303
  Transmission Date: 20050727
  Serious: Yes (Hospitalization)
  Sender: FDA-Public Use
  Company Number: EWC050343043

PATIENT
  Age: 71 Year
  Sex: Male

DRUGS (1)
  1. GEMCITABIENT HYDROCHLORIDE       (GEMCITABINE) [Suspect]
     Indication: ADENOCARCINOMA PANCREAS
     Dosage: 1400 MG
     Route: 042
     Dates: start: 20040201, end: 20040222

REACTIONS (1)
  - DERMATITIS [None]
